FAERS Safety Report 17953539 (Version 1)
Quarter: 2020Q2

REPORT INFORMATION
  Report Type: Spontaneous
  Country: US (occurrence: US)
  Receive Date: 20200628
  Receipt Date: 20200628
  Transmission Date: 20200714
  Serious: No
  Sender: FDA-Public Use
  Company Number: US-LEXICON PHARMACEUTICALS, INC-20-1606-00474

PATIENT
  Age: 38 Year
  Sex: Male

DRUGS (10)
  1. ONDANSETRON [Concomitant]
     Active Substance: ONDANSETRON
  2. OXYCODONE [Concomitant]
     Active Substance: OXYCODONE
  3. PANCRELIPASE. [Concomitant]
     Active Substance: PANCRELIPASE
  4. BUPROPION. [Concomitant]
     Active Substance: BUPROPION
  5. DOCUSATE [Concomitant]
     Active Substance: DOCUSATE
  6. METOPROLOL. [Concomitant]
     Active Substance: METOPROLOL
  7. POTASSIUM [Concomitant]
     Active Substance: POTASSIUM
  8. XERMELO [Suspect]
     Active Substance: TELOTRISTAT ETHYL
     Indication: NEUROENDOCRINE TUMOUR
     Dates: start: 20200308
  9. FENTANYL. [Concomitant]
     Active Substance: FENTANYL
  10. ALPRAZOLAM. [Concomitant]
     Active Substance: ALPRAZOLAM

REACTIONS (1)
  - Peripheral swelling [Unknown]
